FAERS Safety Report 25961732 (Version 1)
Quarter: 2025Q4

REPORT INFORMATION
  Report Type: Other
  Country: EU (occurrence: EU)
  Receive Date: 20251027
  Receipt Date: 20251027
  Transmission Date: 20260118
  Serious: Yes (Hospitalization, Other)
  Sender: MACLEODS
  Company Number: None

PATIENT

DRUGS (5)
  1. CLOPIDOGREL [Suspect]
     Active Substance: CLOPIDOGREL BISULFATE
     Indication: Coronary angioplasty
     Dosage: 75MG - 1-0-0
     Route: 048
     Dates: start: 20250201
  2. RIVAROXABAN [Suspect]
     Active Substance: RIVAROXABAN
     Indication: Atrial fibrillation
     Dosage: 20MG - 1-0-0
     Route: 048
     Dates: start: 20200101
  3. Levothyroxin 100 [Concomitant]
     Indication: Product used for unknown indication
     Dosage: 1-0-0
  4. SIMVASTATIN [Concomitant]
     Active Substance: SIMVASTATIN
     Indication: Product used for unknown indication
     Dosage: 0-0-1
  5. Tamsulosin 0.4 [Concomitant]
     Indication: Product used for unknown indication
     Dosage: 1-0-0

REACTIONS (1)
  - Subdural haematoma [Recovering/Resolving]

NARRATIVE: CASE EVENT DATE: 20250821
